FAERS Safety Report 8045749-7 (Version None)
Quarter: 2012Q1

REPORT INFORMATION
  Report Type: 
  Country: None (occurrence: None)
  Receive Date: 20120113
  Receipt Date: 20120109
  Transmission Date: 20120608
  Serious: Yes (Other)
  Sender: FDA-Public Use
  Company Number: PHEH2012US000859

PATIENT
  Age: 44 Year
  Sex: Female

DRUGS (3)
  1. RECLAST [Suspect]
     Dosage: UNK
     Route: 042
     Dates: start: 20110301
  2. CALCIUM CARBONATE [Concomitant]
  3. CALCIUM [Concomitant]
     Dosage: UNK

REACTIONS (3)
  - CONVULSION [None]
  - DYSKINESIA [None]
  - MALAISE [None]
